FAERS Safety Report 13173825 (Version 1)
Quarter: 2017Q1

REPORT INFORMATION
  Report Type: Spontaneous
  Country: US (occurrence: US)
  Receive Date: 20170131
  Receipt Date: 20170131
  Transmission Date: 20170428
  Serious: No
  Sender: FDA-Public Use
  Company Number: US-ABBVIE-16K-163-1671605-00

PATIENT
  Age: 45 Year
  Sex: Male

DRUGS (2)
  1. HUMIRA [Suspect]
     Active Substance: ADALIMUMAB
     Indication: PSORIATIC ARTHROPATHY
  2. HUMIRA [Suspect]
     Active Substance: ADALIMUMAB
     Indication: PSORIASIS
     Route: 058
     Dates: start: 201301

REACTIONS (9)
  - Device issue [Unknown]
  - Joint lock [Recovering/Resolving]
  - Blood glucose increased [Unknown]
  - Dyspepsia [Unknown]
  - Anxiety [Unknown]
  - Heart rate increased [Recovered/Resolved]
  - Pain in extremity [Recovered/Resolved with Sequelae]
  - Psoriasis [Unknown]
  - Scratch [Unknown]

NARRATIVE: CASE EVENT DATE: 2015
